FAERS Safety Report 7920249-0 (Version None)
Quarter: 2011Q4

REPORT INFORMATION
  Report Type: 
  Country: None (occurrence: None)
  Receive Date: 20111117
  Receipt Date: 20111107
  Transmission Date: 20120403
  Serious: Yes (Hospitalization, Other)
  Sender: FDA-Public Use
  Company Number: US-BAYER-201040974NA

PATIENT
  Age: 14 Year
  Sex: Female
  Weight: 108.39 kg

DRUGS (9)
  1. LORATADINE [Concomitant]
  2. PREVACID [Concomitant]
     Dosage: 30 MG, UNK
     Route: 048
  3. DROSPIRENONE AND ETHINYL ESTRADIOL [Suspect]
     Indication: ACNE
     Dosage: UNK
     Route: 048
     Dates: start: 20091007, end: 20091112
  4. FLONASE [Concomitant]
  5. ALLEGRA [Concomitant]
  6. PULMICORT [Concomitant]
  7. CLARINEX [Concomitant]
  8. AZITHROMYCIN [Concomitant]
  9. ALBUTEROL [Concomitant]

REACTIONS (5)
  - CHOLECYSTITIS CHRONIC [None]
  - EMOTIONAL DISTRESS [None]
  - VENTRICULAR TACHYCARDIA [None]
  - GALLBLADDER DISORDER [None]
  - PAIN [None]
